FAERS Safety Report 5996030-9 (Version None)
Quarter: 2008Q4

REPORT INFORMATION
  Report Type: 
  Country: None (occurrence: None)
  Receive Date: 20081212
  Receipt Date: 20081007
  Transmission Date: 20090506
  Serious: No
  Sender: FDA-Public Use
  Company Number: US-ABBOTT-08P-163-0480372-00

PATIENT
  Sex: Female
  Weight: 129.39 kg

DRUGS (19)
  1. HUMIRA [Suspect]
     Indication: RHEUMATOID ARTHRITIS
     Dates: start: 20081002
  2. FUROSEMIDE [Concomitant]
     Indication: DRUG USE FOR UNKNOWN INDICATION
     Dosage: 40 MILLIGRAMS IN AM AND 20 MILLIGRAMS IN PM
     Route: 048
  3. OMEPRAZOLE [Concomitant]
     Indication: GASTRIC DISORDER
     Dosage: EVERY AM
     Route: 048
  4. GLIPIZIDE [Concomitant]
     Indication: DIABETES MELLITUS
     Dosage: 1/2 PILL DAILY
     Route: 048
  5. GLIPIZIDE [Concomitant]
     Indication: DIABETES MELLITUS INADEQUATE CONTROL
  6. CLOPIDOGREL [Concomitant]
     Indication: DRUG USE FOR UNKNOWN INDICATION
     Route: 048
  7. AZATHIOPRINE [Concomitant]
     Indication: ARTHRITIS
     Route: 048
  8. ACETYLSALICYLIC ACID SRT [Concomitant]
     Indication: DRUG USE FOR UNKNOWN INDICATION
     Route: 048
  9. DOCUSATE SODIUM [Concomitant]
     Indication: DRUG USE FOR UNKNOWN INDICATION
     Route: 048
  10. FERROUS SULFATE TAB [Concomitant]
     Indication: DRUG USE FOR UNKNOWN INDICATION
     Route: 048
  11. PREDNISONE TAB [Concomitant]
     Indication: DRUG USE FOR UNKNOWN INDICATION
     Dosage: 1 AND 1/2 TABLET
     Route: 048
  12. POTASSIUM CHLORIDE [Concomitant]
     Indication: DRUG USE FOR UNKNOWN INDICATION
     Route: 048
  13. PREGABALIN [Concomitant]
     Indication: PARAESTHESIA
     Route: 048
  14. PREGABALIN [Concomitant]
     Indication: NEUROPATHY PERIPHERAL
  15. LEVOTHYROXINE SODIUM [Concomitant]
     Indication: HYPOTHYROIDISM
     Route: 048
  16. ALPRAZOLAM [Concomitant]
     Indication: DIURETIC THERAPY
     Dosage: 5/40 MILLIGRAMS
     Route: 048
  17. PARICALCITOL [Concomitant]
     Indication: RENAL DISORDER
     Route: 048
  18. OSCAL [Concomitant]
     Indication: MINERAL SUPPLEMENTATION
     Route: 048
  19. COD-LIVER OIL [Concomitant]
     Indication: MEDICAL DIET
     Route: 048

REACTIONS (1)
  - OEDEMA PERIPHERAL [None]
